FAERS Safety Report 21395918 (Version 2)
Quarter: 2023Q1

REPORT INFORMATION
  Report Type: Spontaneous
  Country: BR (occurrence: BR)
  Receive Date: 20220930
  Receipt Date: 20230104
  Transmission Date: 20230417
  Serious: Yes (Other)
  Sender: FDA-Public Use
  Company Number: BR-NOVARTISPH-NVSC2022BR218771

PATIENT
  Age: 52 Year
  Sex: Female
  Weight: 55 kg

DRUGS (7)
  1. ZOMETA [Suspect]
     Active Substance: ZOLEDRONIC ACID
     Indication: Invasive breast carcinoma
     Dosage: UNK (4MG/100 ML)
     Route: 065
  2. ZOMETA [Suspect]
     Active Substance: ZOLEDRONIC ACID
     Indication: Menopause
     Dosage: UNK (FIRST DOSE, INFUSION) (WEDNESDAY)
     Route: 065
     Dates: start: 20220608
  3. ZOMETA [Suspect]
     Active Substance: ZOLEDRONIC ACID
     Indication: Osteopenia
  4. ANASTROZOLE [Suspect]
     Active Substance: ANASTROZOLE
     Indication: Breast cancer
     Dosage: UNK
     Route: 065
  5. ANASTROZOLE [Suspect]
     Active Substance: ANASTROZOLE
     Dosage: 1 DOSAGE FORM, QD (1 TABLET PER DAY, PHYSICIAN SUSPENDED)
     Route: 048
     Dates: start: 20220603, end: 20220615
  6. TAMOXIFEN [Concomitant]
     Active Substance: TAMOXIFEN
     Indication: Product used for unknown indication
     Dosage: 1 CP, QD (PER DAY)
     Route: 065
     Dates: start: 20221120
  7. VITAMIN D3 [Concomitant]
     Active Substance: CHOLECALCIFEROL
     Indication: Product used for unknown indication
     Dosage: 50000 UI, QW (ONCE PER WEEK)
     Route: 065

REACTIONS (13)
  - Developmental hip dysplasia [Unknown]
  - Pain in extremity [Not Recovered/Not Resolved]
  - Burning sensation [Not Recovered/Not Resolved]
  - Fracture [Unknown]
  - Exostosis [Unknown]
  - Musculoskeletal discomfort [Unknown]
  - Joint effusion [Unknown]
  - Tendon disorder [Unknown]
  - Ill-defined disorder [Unknown]
  - Bone erosion [Unknown]
  - Movement disorder [Unknown]
  - Oedema peripheral [Unknown]
  - Bone pain [Unknown]

NARRATIVE: CASE EVENT DATE: 20220609
